FAERS Safety Report 9958664 (Version 2)
Quarter: 2014Q3

REPORT INFORMATION
  Report Type: Spontaneous
  Country: AR (occurrence: None)
  Receive Date: 20140227
  Receipt Date: 20140723
  Transmission Date: 20150326
  Serious: Yes (Death, Hospitalization)
  Sender: FDA-Public Use
  Company Number: UTC-044997

PATIENT
  Age: 84 Year
  Sex: Male

DRUGS (2)
  1. SILDENAFIL [Concomitant]
     Active Substance: SILDENAFIL
  2. REMODULIN [Suspect]
     Active Substance: TREPROSTINIL
     Indication: PRODUCT USED FOR UNKNOWN INDICATION
     Route: 058
     Dates: start: 2010

REACTIONS (4)
  - Sepsis [None]
  - Chronic obstructive pulmonary disease [None]
  - Pneumonia [None]
  - Herpes zoster [None]

NARRATIVE: CASE EVENT DATE: 20140210
